FAERS Safety Report 7714809-X (Version None)
Quarter: 2011Q3

REPORT INFORMATION
  Report Type: 
  Country: None (occurrence: None)
  Receive Date: 20110822
  Receipt Date: 20110812
  Transmission Date: 20111222
  Serious: Yes (Hospitalization)
  Sender: FDA-Public Use
  Company Number: 2011HGS-002441

PATIENT
  Age: 52 Year
  Sex: Female
  Weight: 77.1115 kg

DRUGS (2)
  1. COUMADIN [Concomitant]
  2. BENLYSTA [Suspect]
     Indication: SYSTEMIC LUPUS ERYTHEMATOSUS
     Dosage: 10 MG/KG, INTRAVENOUS DRIP
     Route: 042
     Dates: start: 20110531, end: 20110712

REACTIONS (4)
  - ASTHENIA [None]
  - DEHYDRATION [None]
  - PAIN IN EXTREMITY [None]
  - SPEECH DISORDER [None]
